FAERS Safety Report 4748428-4 (Version None)
Quarter: 2005Q3

REPORT INFORMATION
  Report Type: 
  Country: None (occurrence: None)
  Receive Date: 20050817
  Receipt Date: 20050809
  Transmission Date: 20060218
  Serious: Yes (Death)
  Sender: FDA-Public Use
  Company Number: 163-20785-05040332

PATIENT
  Age: 68 Year
  Sex: Female

DRUGS (1)
  1. THALOMID [Suspect]
     Indication: FIBROSIS
     Dosage: 150 MG, DAILY, ORAL
     Route: 048
     Dates: start: 20040609, end: 20050410

REACTIONS (2)
  - CARDIO-RESPIRATORY ARREST [None]
  - CATHETER SEPSIS [None]
